FAERS Safety Report 7936847-4 (Version None)
Quarter: 2011Q4

REPORT INFORMATION
  Report Type: 
  Country: None (occurrence: None)
  Receive Date: 20111123
  Receipt Date: 20111123
  Transmission Date: 20120403
  Serious: No
  Sender: FDA-Public Use
  Company Number: None

PATIENT
  Sex: Male
  Weight: 58.967 kg

DRUGS (1)
  1. PRADAXA [Suspect]

REACTIONS (1)
  - JAUNDICE CHOLESTATIC [None]
